FAERS Safety Report 4441111-4 (Version None)
Quarter: 2004Q3

REPORT INFORMATION
  Report Type: 
  Country: None (occurrence: None)
  Receive Date: 20040831
  Receipt Date: 20030804
  Transmission Date: 20050211
  Serious: Yes (Life-Threatening, Hospitalization, Other)
  Sender: FDA-Public Use
  Company Number: WAES 0308USA00328

PATIENT
  Age: 45 Year
  Sex: Female

DRUGS (5)
  1. MAXALT [Suspect]
     Dosage: 10 MG/PRN/PO
     Route: 048
  2. AGRYLIN [Concomitant]
  3. IMITREX [Concomitant]
  4. PROTONIX [Concomitant]
  5. ZOCOR [Concomitant]

REACTIONS (1)
  - MYOCARDIAL INFARCTION [None]
